FAERS Safety Report 18732188 (Version 2)
Quarter: 2021Q1

REPORT INFORMATION
  Report Type: Spontaneous
  Country: US (occurrence: US)
  Receive Date: 20210112
  Receipt Date: 20210225
  Transmission Date: 20210419
  Serious: Yes (Hospitalization, Disabling, Other)
  Sender: FDA-Public Use
  Company Number: US-009507513-2101USA005182

PATIENT
  Age: 63 Year
  Sex: Male

DRUGS (5)
  1. JANUMET XR [Suspect]
     Active Substance: METFORMIN HYDROCHLORIDE\SITAGLIPTIN PHOSPHATE
     Dosage: STRENGTH:100/1000 (UNITS NOT REPORTED), ONE TABLET ONCE DAILY
     Route: 048
  2. JANUMET XR [Suspect]
     Active Substance: METFORMIN HYDROCHLORIDE\SITAGLIPTIN PHOSPHATE
     Dosage: STRENGTH:100/1000 (UNITS NOT REPORTED), ONE TABLET ONCE DAILY
     Route: 048
  3. JANUMET XR [Suspect]
     Active Substance: METFORMIN HYDROCHLORIDE\SITAGLIPTIN PHOSPHATE
     Indication: DIABETES MELLITUS
     Dosage: STRENGTH:100/1000 (UNITS NOT REPORTED), ONE TABLET ONCE DAILY
     Route: 048
     Dates: end: 201912
  4. GLIPIZIDE. [Concomitant]
     Active Substance: GLIPIZIDE
  5. IRON (UNSPECIFIED) [Concomitant]
     Active Substance: IRON

REACTIONS (12)
  - Hip arthroplasty [Unknown]
  - Agitation [Unknown]
  - Product dose omission issue [Unknown]
  - Product dose omission issue [Unknown]
  - Anxiety [Unknown]
  - Bone debridement [Unknown]
  - Blood glucose increased [Unknown]
  - Catheterisation venous [Unknown]
  - Central venous catheterisation [Unknown]
  - Groin abscess [Unknown]
  - Blood glucose increased [Unknown]
  - Infection [Unknown]

NARRATIVE: CASE EVENT DATE: 201912
